FAERS Safety Report 17764165 (Version 1)
Quarter: 2020Q2

REPORT INFORMATION
  Report Type: Spontaneous
  Country: AE (occurrence: AE)
  Receive Date: 20200511
  Receipt Date: 20200511
  Transmission Date: 20200714
  Serious: Yes (Other)
  Sender: FDA-Public Use
  Company Number: AE-ASTRAZENECA-2020SE59672

PATIENT
  Age: 39 Year
  Sex: Female

DRUGS (2)
  1. PREDO [Concomitant]
     Indication: ASTHMA
     Dosage: 10.0MG UNKNOWN
     Route: 065
     Dates: start: 202004
  2. FASENRA [Suspect]
     Active Substance: BENRALIZUMAB
     Indication: ASTHMA
     Route: 058
     Dates: start: 20190905

REACTIONS (5)
  - Cough [Unknown]
  - Inappropriate schedule of product administration [Not Recovered/Not Resolved]
  - Dyspnoea [Unknown]
  - Pneumonia [Unknown]
  - Secretion discharge [Unknown]

NARRATIVE: CASE EVENT DATE: 202004
